FAERS Safety Report 7729511-8 (Version None)
Quarter: 2011Q3

REPORT INFORMATION
  Report Type: 
  Country: None (occurrence: None)
  Receive Date: 20110906
  Receipt Date: 20110830
  Transmission Date: 20111222
  Serious: No
  Sender: FDA-Public Use
  Company Number: US-PFIZER INC-2011203342

PATIENT
  Sex: Female
  Weight: 52.608 kg

DRUGS (1)
  1. BACITRACIN [Suspect]
     Indication: PROPHYLAXIS
     Dosage: UNK
     Dates: start: 20110823, end: 20110826

REACTIONS (2)
  - ERYTHEMA [None]
  - RASH [None]
